FAERS Safety Report 17305821 (Version 1)
Quarter: 2020Q1

REPORT INFORMATION
  Report Type: Other
  Country: HK (occurrence: HK)
  Receive Date: 20200123
  Receipt Date: 20200123
  Transmission Date: 20200409
  Serious: Yes (Death, Life-Threatening, Hospitalization)
  Sender: FDA-Public Use
  Company Number: HK-NOSTRUM LABORATORIES, INC.-2079322

PATIENT
  Age: 5 Year
  Sex: Female

DRUGS (1)
  1. CARBAMAZEPINE EXTENDED-RELEASE CAPSULES 100 MG, 200 MG, + 300 MG [Suspect]
     Active Substance: CARBAMAZEPINE
     Indication: PARTIAL SEIZURES
     Route: 048

REACTIONS (7)
  - Vanishing bile duct syndrome [Fatal]
  - Duodenal ulcer haemorrhage [Fatal]
  - Acute hepatic failure [Fatal]
  - Pancreatitis acute [Fatal]
  - Pneumonitis [Fatal]
  - Drug reaction with eosinophilia and systemic symptoms [Fatal]
  - Sepsis [Fatal]
